FAERS Safety Report 14989112 (Version 1)
Quarter: 2018Q2

REPORT INFORMATION
  Report Type: Spontaneous
  Country: US (occurrence: US)
  Receive Date: 20180608
  Receipt Date: 20180608
  Transmission Date: 20180711
  Serious: Yes (Congenital Anomaly, Other)
  Sender: FDA-Public Use
  Company Number: US-JNJFOC-20180541748

PATIENT
  Age: 0 Year
  Sex: Female
  Weight: 5.5 kg

DRUGS (2)
  1. BACTRIM [Concomitant]
     Active Substance: SULFAMETHOXAZOLE\TRIMETHOPRIM
     Route: 048
     Dates: start: 2018
  2. REMICADE [Suspect]
     Active Substance: INFLIXIMAB
     Indication: PROCTITIS ULCERATIVE
     Dosage: PARTNER^S DOSING
     Route: 064

REACTIONS (4)
  - Congenital absence of bile ducts [Recovering/Resolving]
  - Premature baby [Unknown]
  - Foetal exposure during pregnancy [Recovered/Resolved]
  - Choledochal cyst [Unknown]

NARRATIVE: CASE EVENT DATE: 2017
